FAERS Safety Report 4434535-2 (Version None)
Quarter: 2004Q3

REPORT INFORMATION
  Report Type: 
  Country: None (occurrence: None)
  Receive Date: 20040721
  Receipt Date: 20040414
  Transmission Date: 20050211
  Serious: No
  Sender: FDA-Public Use
  Company Number: 30019344-C591826-1

PATIENT
  Age: 20 Year
  Sex: Male
  Weight: 74.5 kg

DRUGS (12)
  1. EXTRANEAL [Suspect]
     Indication: PERITONEAL DIALYSIS
     Dosage: 7.5% ICODEXTRIN 2L QD; IP
     Route: 033
     Dates: start: 20040303, end: 20040311
  2. DIANEAL 1.5% [Concomitant]
  3. DIANEAL 2.5% [Concomitant]
  4. MIRALAX [Concomitant]
  5. CLONIDINE HCL [Concomitant]
  6. NORVASC [Concomitant]
  7. EPOGEN [Concomitant]
  8. PREVACID [Concomitant]
  9. HECTORAL [Concomitant]
  10. BACTROBAN TOPICAL [Concomitant]
  11. RENAGEL [Concomitant]
  12. NEPHROVITE [Concomitant]

REACTIONS (2)
  - RASH ERYTHEMATOUS [None]
  - RASH PAPULAR [None]
